FAERS Safety Report 17815713 (Version 1)
Quarter: 2020Q2

REPORT INFORMATION
  Report Type: Spontaneous
  Country: JP (occurrence: JP)
  Receive Date: 20200522
  Receipt Date: 20200522
  Transmission Date: 20200714
  Serious: Yes (Hospitalization)
  Sender: FDA-Public Use
  Company Number: JP-ELI_LILLY_AND_COMPANY-JP201806006895

PATIENT
  Age: 32 Year
  Sex: Male

DRUGS (10)
  1. ZYLORIC [Concomitant]
     Active Substance: ALLOPURINOL
     Indication: HYPERURICAEMIA
     Dosage: UNK
  2. BLOPRESS [Concomitant]
     Active Substance: CANDESARTAN CILEXETIL
  3. FLUITRAN [Suspect]
     Active Substance: TRICHLORMETHIAZIDE
     Indication: PRODUCT USED FOR UNKNOWN INDICATION
     Dosage: UNK
     Route: 048
  4. NELBON [Concomitant]
     Active Substance: NITRAZEPAM
     Indication: DEPRESSION
     Dosage: UNK
  5. ZYPREXA [Suspect]
     Active Substance: OLANZAPINE
     Indication: INSOMNIA
     Route: 048
  6. LEXOTAN [Concomitant]
     Active Substance: BROMAZEPAM
  7. MEVALOTIN [Concomitant]
     Active Substance: PRAVASTATIN SODIUM
  8. NELBON [Concomitant]
     Active Substance: NITRAZEPAM
     Indication: INSOMNIA
  9. LEXAPRO [Suspect]
     Active Substance: ESCITALOPRAM OXALATE
     Indication: PRODUCT USED FOR UNKNOWN INDICATION
     Dosage: UNK
     Route: 065
  10. CONIEL [Concomitant]
     Active Substance: BENIDIPINE HYDROCHLORIDE

REACTIONS (5)
  - Pancreatitis acute [Recovering/Resolving]
  - Off label use [Unknown]
  - Hyponatraemia [Unknown]
  - Hypertriglyceridaemia [Unknown]
  - Type 2 diabetes mellitus [Unknown]
